FAERS Safety Report 23960697 (Version 1)
Quarter: 2024Q2

REPORT INFORMATION
  Report Type: Spontaneous
  Country: CN (occurrence: CN)
  Receive Date: 20240611
  Receipt Date: 20240611
  Transmission Date: 20240716
  Serious: Yes (Other)
  Sender: FDA-Public Use
  Company Number: CN-PFIZER INC-202400188163

PATIENT
  Age: 73 Year
  Sex: Male

DRUGS (1)
  1. LORBRENA [Suspect]
     Active Substance: LORLATINIB
     Dosage: 1 DF, DAILY (1 TABLET A DAY)
     Dates: start: 202405

REACTIONS (2)
  - Hydrothorax [Unknown]
  - Condition aggravated [Unknown]
